FAERS Safety Report 4526873-X (Version None)
Quarter: 2004Q4

REPORT INFORMATION
  Report Type: 
  Country: None (occurrence: None)
  Receive Date: 20041213
  Receipt Date: 20041209
  Transmission Date: 20050328
  Serious: Yes (Hospitalization, Other)
  Sender: FDA-Public Use
  Company Number: 2004-10-0998

PATIENT
  Age: 51 Year
  Sex: Female

DRUGS (5)
  1. CLARINEX [Suspect]
     Indication: HYPERSENSITIVITY
     Dosage: 5 MG ORAL
     Route: 048
  2. POLARAMINE [Suspect]
     Indication: PRURITUS
     Dosage: ORAL
     Route: 048
  3. ZADITEN [Concomitant]
  4. RHINOCORT [Concomitant]
  5. PULMICORT [Concomitant]

REACTIONS (6)
  - COMA [None]
  - DIABETES MELLITUS [None]
  - DRUG INEFFECTIVE [None]
  - DRY MOUTH [None]
  - PANCREAS INFECTION [None]
  - PRURITUS [None]
